FAERS Safety Report 4780921-0 (Version None)
Quarter: 2005Q3

REPORT INFORMATION
  Report Type: 
  Country: None (occurrence: None)
  Receive Date: 20050926
  Receipt Date: 20050926
  Transmission Date: 20060218
  Serious: Yes (Life-Threatening, Hospitalization)
  Sender: FDA-Public Use
  Company Number: None

PATIENT
  Age: 42 Year
  Sex: Female
  Weight: 61.6892 kg

DRUGS (1)
  1. TOPAMAX [Suspect]
     Indication: MIGRAINE
     Dosage: 25MG  QD PO
     Route: 048
     Dates: start: 20050827, end: 20050910

REACTIONS (12)
  - APHASIA [None]
  - BILIARY COLIC [None]
  - BLOOD CHOLESTEROL DECREASED [None]
  - BLOOD PRESSURE DECREASED [None]
  - CHEST PAIN [None]
  - DYSPHAGIA [None]
  - DYSPHEMIA [None]
  - FAECES PALE [None]
  - NEPHROLITHIASIS [None]
  - OESOPHAGEAL SPASM [None]
  - PANCREATITIS [None]
  - WEIGHT DECREASED [None]
